FAERS Safety Report 5233844-7 (Version None)
Quarter: 2007Q1

REPORT INFORMATION
  Report Type: 
  Country: None (occurrence: None)
  Receive Date: 20070208
  Receipt Date: 20070131
  Transmission Date: 20070707
  Serious: Yes (Death, Other)
  Sender: FDA-Public Use
  Company Number: US-PURDUE-USA_2007_0026370

PATIENT
  Age: 51 Year
  Sex: Female
  Weight: 61 kg

DRUGS (3)
  1. OXYCODONE HCL [Suspect]
     Indication: DRUG ABUSER
     Dosage: UNK, SEE TEXT
  2. COCAINE [Suspect]
     Indication: DRUG ABUSER
     Dosage: UNK, SEE TEXT
  3. OPIOIDS [Suspect]
     Indication: DRUG ABUSER
     Dosage: UNK, SEE TEXT

REACTIONS (4)
  - HEPATIC CIRRHOSIS [None]
  - MULTIPLE DRUG OVERDOSE ACCIDENTAL [None]
  - SUBSTANCE ABUSE [None]
  - UNRESPONSIVE TO STIMULI [None]
